FAERS Safety Report 7776801-9 (Version None)
Quarter: 2011Q3

REPORT INFORMATION
  Report Type: 
  Country: None (occurrence: None)
  Receive Date: 20110923
  Receipt Date: 20110923
  Transmission Date: 20111222
  Serious: Yes (Hospitalization)
  Sender: FDA-Public Use
  Company Number: None

PATIENT
  Sex: Female
  Weight: 84.5 kg

DRUGS (3)
  1. FLUOROURACIL [Suspect]
     Dosage: 7840 MG
  2. CISPLATIN [Suspect]
     Dosage: 147 MG
  3. ERBITUX [Suspect]
     Dosage: 1764 MG

REACTIONS (4)
  - NAUSEA [None]
  - RENAL FAILURE ACUTE [None]
  - VOMITING [None]
  - DEHYDRATION [None]
